FAERS Safety Report 7978416 (Version 3)
Quarter: 2013Q2

REPORT INFORMATION
  Report Type: Report from Study
  Country: CA (occurrence: CA)
  Receive Date: 20110607
  Receipt Date: 20130408
  Transmission Date: 20140414
  Serious: Yes (Death, Hospitalization)
  Sender: FDA-Public Use
  Company Number: PHHO2004CA16378

PATIENT
  Sex: Male

DRUGS (5)
  1. CLOZARIL [Suspect]
     Indication: SCHIZOPHRENIA
     Dosage: 600 MG, QHS
     Route: 048
     Dates: start: 19981216
  2. ANTIBIOTICS [Suspect]
     Dosage: UNK
  3. CLONAZEPAM [Concomitant]
     Dosage: 0.5 MG, BID
     Route: 048
  4. AMLODIPINE [Concomitant]
     Dosage: 5 MG, QD
     Route: 048
  5. EPIVAL [Concomitant]
     Dosage: 500 MG, BID
     Route: 048

REACTIONS (9)
  - Respiratory failure [Fatal]
  - Pneumonia [Fatal]
  - Fall [Unknown]
  - Pallor [Unknown]
  - Asthenia [Unknown]
  - Oesophagitis [Recovering/Resolving]
  - Gastric polyps [Recovering/Resolving]
  - Oesophageal ulcer [Recovering/Resolving]
  - Drug ineffective [Unknown]
